FAERS Safety Report 26130354 (Version 1)
Quarter: 2025Q4

REPORT INFORMATION
  Report Type: Spontaneous
  Country: CN (occurrence: CN)
  Receive Date: 20251208
  Receipt Date: 20251208
  Transmission Date: 20260117
  Serious: Yes (Disabling, Other)
  Sender: CSL BEHRING
  Company Number: CN-BEH-2025227893

PATIENT
  Age: 69 Year
  Sex: Female
  Weight: 50 kg

DRUGS (1)
  1. ALBURX [Suspect]
     Active Substance: ALBUMIN HUMAN
     Indication: Ill-defined disorder
     Dosage: 10 G, OD
     Route: 041
     Dates: start: 20251026, end: 20251026

REACTIONS (9)
  - Anaphylactic shock [Recovering/Resolving]
  - Oxygen saturation decreased [Recovered/Resolved]
  - Hyperhidrosis [Unknown]
  - Cyanosis [Recovering/Resolving]
  - Blood pressure increased [Recovered/Resolved]
  - Hypotension [Recovering/Resolving]
  - Blood pressure decreased [Recovering/Resolving]
  - Blood glucose increased [Unknown]
  - Blood potassium decreased [Unknown]

NARRATIVE: CASE EVENT DATE: 20251026
